FAERS Safety Report 14028058 (Version 1)
Quarter: 2017Q3

REPORT INFORMATION
  Report Type: Spontaneous
  Country: US (occurrence: None)
  Receive Date: 20170930
  Receipt Date: 20170930
  Transmission Date: 20171128
  Serious: Yes (Other)
  Sender: FDA-Public Use
  Company Number: None

PATIENT
  Age: 66 Year
  Sex: Male
  Weight: 127.01 kg

DRUGS (7)
  1. BUSPORINE [Concomitant]
  2. LEXISCAN [Suspect]
     Active Substance: REGADENOSON
  3. ATENOLOL. [Concomitant]
     Active Substance: ATENOLOL
  4. FLUCOSTINATE [Concomitant]
  5. TRAMADOL. [Concomitant]
     Active Substance: TRAMADOL
  6. VENLAFAXINE ER [Concomitant]
     Active Substance: VENLAFAXINE HYDROCHLORIDE
  7. TRAZODONE [Concomitant]
     Active Substance: TRAZODONE HYDROCHLORIDE

REACTIONS (5)
  - Scratch [None]
  - Urticaria [None]
  - Paraesthesia [None]
  - Blister [None]
  - Skin haemorrhage [None]

NARRATIVE: CASE EVENT DATE: 20170928
